FAERS Safety Report 5441759-4 (Version None)
Quarter: 2007Q3

REPORT INFORMATION
  Report Type: 
  Country: None (occurrence: None)
  Receive Date: 20070829
  Receipt Date: 20070829
  Transmission Date: 20080115
  Serious: Yes (Hospitalization)
  Sender: FDA-Public Use
  Company Number: None

PATIENT
  Sex: Female
  Weight: 64 kg

DRUGS (2)
  1. FLUOROURACIL [Suspect]
     Dosage: 3400 MG
  2. MITOMYCIN [Suspect]
     Dosage: 8.5 MG

REACTIONS (5)
  - ABDOMINAL PAIN [None]
  - CHILLS [None]
  - DIARRHOEA [None]
  - NAUSEA [None]
  - VOMITING [None]
